FAERS Safety Report 4991717-9 (Version None)
Quarter: 2006Q2

REPORT INFORMATION
  Report Type: 
  Country: None (occurrence: None)
  Receive Date: 20060504
  Receipt Date: 20060426
  Transmission Date: 20061013
  Serious: Yes (Hospitalization)
  Sender: FDA-Public Use
  Company Number: FR-GLAXOSMITHKLINE-B0421921A

PATIENT
  Age: 78 Year
  Sex: Male

DRUGS (10)
  1. AVANDAMET [Suspect]
     Dosage: 1TAB THREE TIMES PER DAY
     Route: 048
     Dates: end: 20060221
  2. DAONIL [Suspect]
     Dosage: 5MG THREE TIMES PER DAY
     Route: 048
     Dates: end: 20060221
  3. LOGIMAX [Concomitant]
     Route: 065
  4. SECALIP [Concomitant]
     Route: 065
  5. FLUOXETINE [Concomitant]
     Route: 065
  6. COAPROVEL [Concomitant]
     Route: 065
  7. KALEORID [Concomitant]
     Route: 065
  8. ASASANTINE [Concomitant]
     Route: 065
  9. SERESTA [Concomitant]
     Dosage: 50MG UNKNOWN
     Route: 048
  10. LAROXYL [Concomitant]
     Route: 065

REACTIONS (3)
  - DYSARTHRIA [None]
  - FALL [None]
  - HYPOGLYCAEMIA [None]
